FAERS Safety Report 9378567 (Version 1)
Quarter: 2013Q3

REPORT INFORMATION
  Report Type: Report from Study
  Country: US (occurrence: US)
  Receive Date: 20130702
  Receipt Date: 20130702
  Transmission Date: 20140515
  Serious: Yes (Death, Other)
  Sender: FDA-Public Use
  Company Number: US-ROCHE-663739

PATIENT
  Sex: 0

DRUGS (1)
  1. TRETINOIN [Suspect]
     Indication: ACUTE PROMYELOCYTIC LEUKAEMIA
     Route: 065

REACTIONS (12)
  - Retinoic acid syndrome [Fatal]
  - Disease progression [Fatal]
  - Haemorrhage [Unknown]
  - Pancreatitis [Unknown]
  - Infection [Unknown]
  - Leukopenia [Unknown]
  - Anaemia [Unknown]
  - Thrombocytopenia [Unknown]
  - Leukocytosis [Unknown]
  - Bone pain [Unknown]
  - Hypertriglyceridaemia [Unknown]
  - Benign intracranial hypertension [Unknown]
